FAERS Safety Report 23906311 (Version 1)
Quarter: 2024Q2

REPORT INFORMATION
  Report Type: Spontaneous
  Country: US (occurrence: US)
  Receive Date: 20240528
  Receipt Date: 20240528
  Transmission Date: 20240716
  Serious: Yes (Hospitalization)
  Sender: FDA-Public Use
  Company Number: US-PADAGIS-2024PAD00892

PATIENT

DRUGS (5)
  1. CYCLOSPORINE [Interacting]
     Active Substance: CYCLOSPORINE
     Indication: Renal transplant
     Dosage: UNK
     Route: 065
  2. ROSUVASTATIN [Interacting]
     Active Substance: ROSUVASTATIN
     Indication: Coronary artery disease
     Dosage: 40 MG, QD
     Route: 065
  3. ROSUVASTATIN [Interacting]
     Active Substance: ROSUVASTATIN
     Indication: Hyperlipidaemia
  4. LEFLUNOMIDE [Interacting]
     Active Substance: LEFLUNOMIDE
     Indication: Renal transplant
     Dosage: UNK
     Route: 065
  5. METHYLPREDNISOLONE [Concomitant]
     Active Substance: METHYLPREDNISOLONE
     Indication: Product used for unknown indication
     Dosage: 250 MG
     Route: 042

REACTIONS (3)
  - Acute kidney injury [Unknown]
  - Rhabdomyolysis [Unknown]
  - Drug interaction [Unknown]
